FAERS Safety Report 4751198-7 (Version None)
Quarter: 2005Q3

REPORT INFORMATION
  Report Type: 
  Country: None (occurrence: None)
  Receive Date: 20050823
  Receipt Date: 20050823
  Transmission Date: 20060218
  Serious: Yes (Other)
  Sender: FDA-Public Use
  Company Number: None

PATIENT
  Age: 56 Year
  Sex: Female
  Weight: 85.7298 kg

DRUGS (2)
  1. LIPITOR [Suspect]
     Dosage: 1 TABLET 1 DAILY
  2. ACCUPRIL [Suspect]
     Dosage: 1 TABLET 1 DAILT

REACTIONS (1)
  - ALOPECIA [None]
